FAERS Safety Report 18572508 (Version 1)
Quarter: 2020Q4

REPORT INFORMATION
  Report Type: Spontaneous
  Country: DE (occurrence: DE)
  Receive Date: 20201203
  Receipt Date: 20201203
  Transmission Date: 20210114
  Serious: Yes (Hospitalization)
  Sender: FDA-Public Use
  Company Number: DE-ELI_LILLY_AND_COMPANY-DE202011011561

PATIENT
  Age: 30 Year
  Sex: Male
  Weight: 68 kg

DRUGS (6)
  1. ZYPADHERA [Suspect]
     Active Substance: OLANZAPINE PAMOATE
     Dosage: 1 DOSAGE FORM, MONTHLY (1/M)
     Route: 030
     Dates: end: 20201016
  2. ZYPADHERA [Suspect]
     Active Substance: OLANZAPINE PAMOATE
     Dosage: 1 DOSAGE FORM, MONTHLY (1/M)
     Route: 030
     Dates: end: 20201016
  3. ZYPADHERA [Suspect]
     Active Substance: OLANZAPINE PAMOATE
     Indication: SCHIZOPHRENIA
     Dosage: 1 DOSAGE FORM, MONTHLY (1/M)
     Route: 030
     Dates: start: 2013
  4. ZYPADHERA [Suspect]
     Active Substance: OLANZAPINE PAMOATE
     Indication: SCHIZOPHRENIA
     Dosage: 1 DOSAGE FORM, MONTHLY (1/M)
     Route: 030
     Dates: start: 2013
  5. ZYPADHERA [Suspect]
     Active Substance: OLANZAPINE PAMOATE
     Dosage: 1 DOSAGE FORM, MONTHLY (1/M)
     Route: 030
     Dates: end: 20201016
  6. ZYPADHERA [Suspect]
     Active Substance: OLANZAPINE PAMOATE
     Indication: SCHIZOPHRENIA
     Dosage: 1 DOSAGE FORM, MONTHLY (1/M)
     Route: 030
     Dates: start: 2013

REACTIONS (7)
  - Somnolence [Recovered/Resolved]
  - Dizziness [Recovered/Resolved]
  - Abnormal behaviour [Recovered/Resolved]
  - Psychomotor hyperactivity [Recovered/Resolved]
  - Epilepsy [Recovered/Resolved]
  - Confusional state [Recovered/Resolved]
  - Language disorder [Recovered/Resolved]

NARRATIVE: CASE EVENT DATE: 20201016
